FAERS Safety Report 5282203-X (Version None)
Quarter: 2007Q1

REPORT INFORMATION
  Report Type: 
  Country: None (occurrence: None)
  Receive Date: 20070330
  Receipt Date: 20061206
  Transmission Date: 20070707
  Serious: Yes (Hospitalization, Other)
  Sender: FDA-Public Use
  Company Number: US-PFIZER INC-2007020011

PATIENT
  Age: 95 Year
  Sex: Female

DRUGS (1)
  1. NORVASC [Suspect]
     Dates: start: 20010101, end: 20061110

REACTIONS (1)
  - CARDIAC FAILURE CONGESTIVE [None]
